FAERS Safety Report 7133314-5 (Version None)
Quarter: 2010Q4

REPORT INFORMATION
  Report Type: 
  Country: None (occurrence: None)
  Receive Date: 20101117
  Receipt Date: 20101110
  Transmission Date: 20110411
  Serious: Yes (Hospitalization)
  Sender: FDA-Public Use
  Company Number: DSA_44302_2010

PATIENT
  Age: 56 Year
  Sex: Female

DRUGS (7)
  1. WELLBUTRIN XL [Suspect]
     Indication: DEPRESSION
     Dosage: (DF)
  2. ANTIINFL. PREP. [Concomitant]
  3. DOVONEX [Concomitant]
  4. GLUCOSAMINE [Concomitant]
  5. FISH OIL [Concomitant]
  6. VITAMIN C AND E [Concomitant]
  7. IBUPROFEN [Concomitant]

REACTIONS (2)
  - GLOSSODYNIA [None]
  - STEVENS-JOHNSON SYNDROME [None]
